FAERS Safety Report 10244575 (Version 1)
Quarter: 2014Q2

REPORT INFORMATION
  Report Type: Spontaneous
  Country: US (occurrence: US)
  Receive Date: 20140618
  Receipt Date: 20140618
  Transmission Date: 20141212
  Serious: Yes (Other)
  Sender: FDA-Public Use
  Company Number: US-GLAXOSMITHKLINE-A1076432A

PATIENT
  Age: 69 Year
  Sex: Female

DRUGS (5)
  1. ADVAIR HFA [Suspect]
     Indication: BRONCHIECTASIS
     Dosage: 1PUFF TWICE PER DAY
     Route: 065
     Dates: start: 201210, end: 201404
  2. SEREVENT [Suspect]
     Indication: PRODUCT USED FOR UNKNOWN INDICATION
     Dosage: 1PUFF TWICE PER DAY
     Route: 065
     Dates: start: 20140605
  3. VENTOLIN [Suspect]
     Indication: ASTHMA
     Route: 065
     Dates: start: 2004
  4. AMLODIPINE BESYLATE [Concomitant]
  5. TRIAMTERENE HCTZ [Concomitant]

REACTIONS (9)
  - Bronchopneumonia [Recovered/Resolved]
  - Dysphonia [Recovered/Resolved]
  - Burning sensation [Recovered/Resolved]
  - Throat irritation [Recovered/Resolved]
  - Dry throat [Recovered/Resolved]
  - Respiratory disorder [Recovered/Resolved]
  - Bronchitis [Recovered/Resolved]
  - Cough [Not Recovered/Not Resolved]
  - Bronchiectasis [Recovered/Resolved]
